FAERS Safety Report 7589051-6 (Version None)
Quarter: 2011Q3

REPORT INFORMATION
  Report Type: 
  Country: None (occurrence: None)
  Receive Date: 20110705
  Receipt Date: 20110613
  Transmission Date: 20111222
  Serious: No
  Sender: FDA-Public Use
  Company Number: US-ROXANE LABORATORIES, INC.-2011-RO-00889RO

PATIENT
  Sex: Female

DRUGS (1)
  1. LITHIUM CARBONATE [Suspect]

REACTIONS (2)
  - MEDICATION RESIDUE [None]
  - PRODUCT SOLUBILITY ABNORMAL [None]
